FAERS Safety Report 8974749 (Version 2)
Quarter: 2013Q1

REPORT INFORMATION
  Report Type: Spontaneous
  Country: IT (occurrence: IT)
  Receive Date: 20121219
  Receipt Date: 20130321
  Transmission Date: 20140127
  Serious: Yes (Death)
  Sender: FDA-Public Use
  Company Number: IT-CELGENEUS-083-21880-12121795

PATIENT
  Age: 73 Year
  Sex: Female

DRUGS (4)
  1. REVLIMID [Suspect]
     Indication: PLASMA CELL MYELOMA
     Dosage: 10 MILLIGRAM
     Route: 048
     Dates: start: 20121205, end: 20121213
  2. REVLIMID [Suspect]
     Route: 048
     Dates: start: 20121116, end: 20121129
  3. REVLIMID [Suspect]
     Route: 048
     Dates: start: 20120301, end: 20121130
  4. DEXAMETHASONE [Concomitant]
     Indication: PLASMA CELL MYELOMA
     Route: 065
     Dates: start: 20120301, end: 20121130

REACTIONS (1)
  - Pneumonitis [Fatal]
